FAERS Safety Report 5784833-5 (Version None)
Quarter: 2008Q2

REPORT INFORMATION
  Report Type: 
  Country: None (occurrence: None)
  Receive Date: 20080605
  Receipt Date: 20080415
  Transmission Date: 20081010
  Serious: No
  Sender: FDA-Public Use
  Company Number: A0722839A

PATIENT
  Age: 59 Year
  Sex: Male

DRUGS (5)
  1. ALLI [Suspect]
     Route: 048
     Dates: start: 20080413
  2. UNKNOWN MEDICATION [Concomitant]
  3. QUINAPRIL [Concomitant]
  4. ACTOS [Concomitant]
  5. GLIMEPIRIDE [Concomitant]

REACTIONS (1)
  - HYPERTENSION [None]
